FAERS Safety Report 18539204 (Version 1)
Quarter: 2020Q4

REPORT INFORMATION
  Report Type: Spontaneous
  Country: US (occurrence: US)
  Receive Date: 20201123
  Receipt Date: 20201123
  Transmission Date: 20210114
  Serious: Yes (Hospitalization)
  Sender: FDA-Public Use
  Company Number: None

PATIENT
  Sex: Male

DRUGS (1)
  1. HUMIRA [Suspect]
     Active Substance: ADALIMUMAB
     Indication: COLITIS ULCERATIVE
     Route: 058
     Dates: start: 20180129

REACTIONS (9)
  - Lower limb fracture [None]
  - Hypotension [None]
  - Fall [None]
  - Quality of life decreased [None]
  - Sinusitis [None]
  - Stress [None]
  - Hypoglycaemia [None]
  - Depression [None]
  - Abdominal pain [None]
